FAERS Safety Report 4411885-7 (Version None)
Quarter: 2004Q3

REPORT INFORMATION
  Report Type: 
  Country: None (occurrence: None)
  Receive Date: 20040730
  Receipt Date: 20030804
  Transmission Date: 20050211
  Serious: No
  Sender: FDA-Public Use
  Company Number: US-GLAXOSMITHKLINE-A0420298A

PATIENT
  Sex: Female

DRUGS (2)
  1. RANITIDINE [Suspect]
     Indication: ILL-DEFINED DISORDER
     Dosage: 150MG UNKNOWN
     Route: 048
  2. UNKNOWN MEDICATION [Suspect]
     Route: 065

REACTIONS (1)
  - PALPITATIONS [None]
